FAERS Safety Report 5778394-4 (Version None)
Quarter: 2008Q2

REPORT INFORMATION
  Report Type: 
  Country: None (occurrence: None)
  Receive Date: 20080619
  Receipt Date: 20080612
  Transmission Date: 20081010
  Serious: Yes (Hospitalization, Other)
  Sender: FDA-Public Use
  Company Number: CA-BAYER-200812132NA

PATIENT
  Age: 64 Year
  Sex: Male

DRUGS (4)
  1. CIPRO [Suspect]
     Indication: DIVERTICULITIS
     Route: 048
     Dates: start: 20070401
  2. LIPITOR [Concomitant]
     Dosage: AS USED: 40 MG
  3. ASPIRIN [Concomitant]
     Dosage: AS USED: 81 MG
  4. PLAVIX [Concomitant]
     Dosage: AS USED: 75 MG
     Dates: start: 20060101

REACTIONS (17)
  - ANOREXIA [None]
  - ANXIETY [None]
  - ASTHENIA [None]
  - CONFUSIONAL STATE [None]
  - DEPRESSION [None]
  - DERAILMENT [None]
  - DISORIENTATION [None]
  - DYSPEPSIA [None]
  - DYSPHONIA [None]
  - FEELING ABNORMAL [None]
  - HEADACHE [None]
  - INSOMNIA [None]
  - NAUSEA [None]
  - NERVOUSNESS [None]
  - NIGHTMARE [None]
  - SUICIDAL IDEATION [None]
  - VOMITING [None]
